FAERS Safety Report 12032361 (Version 1)
Quarter: 2016Q1

REPORT INFORMATION
  Report Type: Report from Study
  Country: US (occurrence: US)
  Receive Date: 20160207
  Receipt Date: 20160207
  Transmission Date: 20160526
  Serious: No
  Sender: FDA-Public Use
  Company Number: US-ABBVIE-15K-163-1508294-00

PATIENT
  Age: 53 Year
  Sex: Male

DRUGS (1)
  1. HUMIRA [Suspect]
     Active Substance: ADALIMUMAB
     Indication: MULTIPLE SCLEROSIS
     Route: 058
     Dates: start: 20151009

REACTIONS (4)
  - Drug ineffective [Unknown]
  - Discomfort [Unknown]
  - Activities of daily living impaired [Unknown]
  - Pain [Unknown]

NARRATIVE: CASE EVENT DATE: 201510
